FAERS Safety Report 6113781-6 (Version None)
Quarter: 2009Q1

REPORT INFORMATION
  Report Type: 
  Country: None (occurrence: None)
  Receive Date: 20090312
  Receipt Date: 20090309
  Transmission Date: 20090719
  Serious: Yes (Hospitalization)
  Sender: FDA-Public Use
  Company Number: US-B.I. PHARMACEUTICALS,INC./RIDGEFIELD-2009-BP-02603BP

PATIENT
  Age: 71 Year
  Sex: Female

DRUGS (5)
  1. COMBIVENT [Suspect]
     Indication: CHRONIC OBSTRUCTIVE PULMONARY DISEASE
     Route: 055
     Dates: start: 20000101
  2. ISOSORBIDE DINITRATE [Concomitant]
  3. DUONEB [Concomitant]
  4. MAXALT [Concomitant]
     Indication: HYPERTENSION
  5. PREDNISONE [Concomitant]
     Dosage: 10MG
     Route: 048

REACTIONS (1)
  - BREAST CANCER [None]
